FAERS Safety Report 5567854-7 (Version None)
Quarter: 2007Q4

REPORT INFORMATION
  Report Type: 
  Country: None (occurrence: None)
  Receive Date: 20071220
  Receipt Date: 20071213
  Transmission Date: 20080405
  Serious: Yes (Hospitalization, Other)
  Sender: FDA-Public Use
  Company Number: PHHY2007JP00951

PATIENT
  Age: 63 Year
  Sex: Female
  Weight: 89 kg

DRUGS (4)
  1. GLYCORAN [Concomitant]
     Indication: DIABETES MELLITUS
     Dosage: 750 MG
     Route: 048
     Dates: start: 20030220
  2. CONIEL [Concomitant]
     Indication: HYPERTENSION
     Dosage: 8 MG/DAY
     Route: 048
     Dates: start: 20030918
  3. ANTIHYPERTENSIVES [Concomitant]
  4. DIOVAN [Suspect]
     Indication: HYPERTENSION
     Dosage: 80 MG, QD
     Route: 048
     Dates: start: 20030529, end: 20050104

REACTIONS (7)
  - CARDIAC FAILURE ACUTE [None]
  - DYSPNOEA [None]
  - HYPOXIA [None]
  - NASOPHARYNGITIS [None]
  - ORTHOPNOEA [None]
  - PLEURAL EFFUSION [None]
  - TACHYCARDIA [None]
